FAERS Safety Report 10590801 (Version 1)
Quarter: 2014Q4

REPORT INFORMATION
  Report Type: Spontaneous
  Country: DE (occurrence: DE)
  Receive Date: 20141118
  Receipt Date: 20141118
  Transmission Date: 20150529
  Serious: Yes (Congenital Anomaly, Other)
  Sender: FDA-Public Use
  Company Number: DE-PFIZER INC-2014314854

PATIENT
  Sex: Male
  Weight: 2.8 kg

DRUGS (3)
  1. SERTRALINE HCL [Suspect]
     Active Substance: SERTRALINE HYDROCHLORIDE
     Indication: DEPRESSION
     Dosage: 50 MG, 1X/DAY, 0.-7. GESTATIONAL WEEK
     Route: 064
  2. FOLIO [Concomitant]
     Active Substance: FOLIC ACID
     Indication: PROPHYLAXIS OF NEURAL TUBE DEFECT
     Dosage: 0.4 MG, 1X/DAY, 0.-26.3. GESTATIONAL WEEK
     Route: 064
     Dates: start: 20130719, end: 20140120
  3. XANAFLU [Concomitant]
     Indication: IMMUNISATION
     Dosage: 12.4. GESTATIONAL WEEK
     Route: 064
     Dates: start: 20131015, end: 20131015

REACTIONS (3)
  - Maternal exposure during pregnancy [Recovered/Resolved]
  - Small for dates baby [Unknown]
  - Polydactyly [Recovered/Resolved]

NARRATIVE: CASE EVENT DATE: 20140420
